FAERS Safety Report 20974311 (Version 1)
Quarter: 2022Q2

REPORT INFORMATION
  Report Type: Spontaneous
  Country: US (occurrence: US)
  Receive Date: 20220617
  Receipt Date: 20220617
  Transmission Date: 20220721
  Serious: No
  Sender: FDA-Public Use
  Company Number: US-MYLANLABS-2022M1010480

PATIENT
  Sex: Male
  Weight: 102 kg

DRUGS (2)
  1. CLOZAPINE [Suspect]
     Active Substance: CLOZAPINE
     Indication: Schizophrenia
     Dosage: 25 MILLIGRAM, QD (DAILY)
     Route: 048
  2. CLOZAPINE [Suspect]
     Active Substance: CLOZAPINE
     Dosage: 50 MILLIGRAM, QD (DAILY)
     Dates: start: 2008

REACTIONS (10)
  - Disturbance in attention [Recovered/Resolved]
  - Hypoaesthesia [Unknown]
  - Dysgeusia [Unknown]
  - Adverse event [Unknown]
  - Drug intolerance [Unknown]
  - Dizziness [Recovered/Resolved]
  - Product solubility abnormal [Unknown]
  - Product after taste [Unknown]
  - Product use complaint [Unknown]
  - Drug ineffective [Unknown]
